FAERS Safety Report 17262095 (Version 1)
Quarter: 2020Q1

REPORT INFORMATION
  Report Type: Spontaneous
  Country: TR (occurrence: TR)
  Receive Date: 20200113
  Receipt Date: 20200113
  Transmission Date: 20200409
  Serious: Yes (Death, Hospitalization)
  Sender: FDA-Public Use
  Company Number: TR-PFIZER INC-2020008641

PATIENT
  Age: 58 Year
  Sex: Male

DRUGS (7)
  1. TOPIRAMATE. [Suspect]
     Active Substance: TOPIRAMATE
     Indication: OPSOCLONUS MYOCLONUS
     Dosage: 50 MG, DAILY
     Route: 042
     Dates: start: 20181130
  2. CISPLATIN. [Concomitant]
     Active Substance: CISPLATIN
     Indication: SMALL CELL LUNG CANCER
     Dosage: 75 MG/M2, CYCLIC, (DAY 1)
     Route: 042
     Dates: start: 201811
  3. CLONAZEPAM. [Suspect]
     Active Substance: CLONAZEPAM
     Indication: OPSOCLONUS MYOCLONUS
     Dosage: 1.5 MG, 2X/DAY
     Route: 042
     Dates: start: 20181126
  4. METHYLPREDNISOLONE ACETATE. [Suspect]
     Active Substance: METHYLPREDNISOLONE ACETATE
     Indication: OPSOCLONUS MYOCLONUS
     Dosage: 1000 MG, DAILY
     Route: 042
     Dates: start: 20181113
  5. CLONAZEPAM. [Suspect]
     Active Substance: CLONAZEPAM
     Dosage: 10 MG, DAILY
     Route: 042
     Dates: start: 201811
  6. ETOPOSIDE. [Concomitant]
     Active Substance: ETOPOSIDE
     Indication: SMALL CELL LUNG CANCER
     Dosage: 100 MG/M2, CYCLIC (DAY 1-2-3)
     Dates: start: 201811
  7. IMMUNOGLOBULIN HUMAN NORMAL [Suspect]
     Active Substance: HUMAN IMMUNOGLOBULIN G
     Indication: OPSOCLONUS MYOCLONUS
     Dosage: UNK, DAILY (0.4 G/KG)
     Route: 042
     Dates: start: 20181120

REACTIONS (4)
  - Off label use [Unknown]
  - Product use in unapproved indication [Unknown]
  - Drug ineffective [Fatal]
  - Incorrect route of product administration [Unknown]

NARRATIVE: CASE EVENT DATE: 201811
